FAERS Safety Report 6004659-7 (Version None)
Quarter: 2008Q4

REPORT INFORMATION
  Report Type: 
  Country: None (occurrence: None)
  Receive Date: 20081216
  Receipt Date: 20081205
  Transmission Date: 20090506
  Serious: Yes (Hospitalization)
  Sender: FDA-Public Use
  Company Number: US-ELI_LILLY_AND_COMPANY-US200812001657

PATIENT
  Sex: Female

DRUGS (2)
  1. FORTEO [Suspect]
  2. PREDNISONE TAB [Concomitant]
     Dosage: 50 MG, UNK

REACTIONS (2)
  - ASTHENIA [None]
  - CROHN'S DISEASE [None]
